FAERS Safety Report 11842646 (Version 1)
Quarter: 2015Q4

REPORT INFORMATION
  Report Type: Report from Study
  Country: JP (occurrence: JP)
  Receive Date: 20151216
  Receipt Date: 20151216
  Transmission Date: 20160305
  Serious: Yes (Other)
  Sender: FDA-Public Use
  Company Number: PHJP2015JP022350

PATIENT
  Sex: Male

DRUGS (3)
  1. VIDAZA [Suspect]
     Active Substance: AZACITIDINE
     Indication: MYELODYSPLASTIC SYNDROME
     Dosage: UNK
     Route: 065
  2. NEORAL [Suspect]
     Active Substance: CYCLOSPORINE
     Indication: ANAEMIA
     Dosage: UNK
     Route: 048
     Dates: start: 2012
  3. EXJADE [Concomitant]
     Active Substance: DEFERASIROX
     Indication: MYELODYSPLASTIC SYNDROME
     Dosage: UNK
     Route: 048
     Dates: start: 201309

REACTIONS (11)
  - Opportunistic infection [Unknown]
  - Tremor [Unknown]
  - Drug ineffective [Unknown]
  - Melaena [Unknown]
  - Gout [Unknown]
  - Muscle spasms [Unknown]
  - Acne [Unknown]
  - Refractory anaemia with an excess of blasts [Unknown]
  - Pyelonephritis [Unknown]
  - Pyrexia [Unknown]
  - Bone marrow failure [Unknown]

NARRATIVE: CASE EVENT DATE: 201312
